FAERS Safety Report 6689405-6 (Version None)
Quarter: 2010Q2

REPORT INFORMATION
  Report Type: 
  Country: None (occurrence: None)
  Receive Date: 20100419
  Receipt Date: 20100419
  Transmission Date: 20101027
  Serious: Yes (Hospitalization)
  Sender: FDA-Public Use
  Company Number: None

PATIENT
  Sex: Male
  Weight: 49.8957 kg

DRUGS (3)
  1. CARBOPLATIN [Suspect]
     Indication: NON-SMALL CELL LUNG CANCER
     Dosage: 500 MG IV D 1, 2, 3 Q 21 DAYS I.V.
     Route: 042
     Dates: start: 20091221
  2. ETOPOSIDE [Suspect]
     Indication: NON-SMALL CELL LUNG CANCER
     Dosage: 80 MG/M2 D 1, 2, 3 Q 21 DAYS I.V.
     Route: 042
     Dates: start: 20091221
  3. RAD001 [Suspect]
     Indication: NON-SMALL CELL LUNG CANCER
     Dosage: 2.5MG DAILY P.O.
     Route: 048
     Dates: start: 20091221

REACTIONS (3)
  - PULMONARY EMBOLISM [None]
  - THROMBOSIS IN DEVICE [None]
  - TREATMENT NONCOMPLIANCE [None]
